FAERS Safety Report 11307116 (Version 2)
Quarter: 2015Q3

REPORT INFORMATION
  Report Type: Spontaneous
  Country: JP (occurrence: JP)
  Receive Date: 20150723
  Receipt Date: 20150817
  Transmission Date: 20151125
  Serious: Yes (Disabling, Other)
  Sender: FDA-Public Use
  Company Number: JP-REGENERON PHARMACEUTICALS, INC.-2015-11799

PATIENT

DRUGS (9)
  1. RHEUMATREX [Concomitant]
     Active Substance: METHOTREXATE SODIUM
     Dosage: 2 MG, BID
     Route: 048
  2. ATORVASTATIN [Concomitant]
     Active Substance: ATORVASTATIN
     Dosage: 5 MG, QD
     Route: 048
  3. EYLEA [Suspect]
     Active Substance: AFLIBERCEPT
     Indication: CHOROIDAL NEOVASCULARISATION
     Dosage: 2 MG, ONCE, RIGHT EYE
     Route: 031
     Dates: start: 20150302, end: 20150302
  4. TALION                             /01587402/ [Concomitant]
     Active Substance: BEPOTASTINE
     Dosage: 10 MG, BID
     Route: 048
  5. RHEUMATREX [Concomitant]
     Active Substance: METHOTREXATE SODIUM
     Dosage: 2 MG, OM
     Route: 048
  6. EYLEA [Suspect]
     Active Substance: AFLIBERCEPT
     Indication: AGE-RELATED MACULAR DEGENERATION
     Dosage: 2 MG, ONCE, RIGHT EYE
     Route: 031
     Dates: start: 20150202, end: 20150202
  7. EYLEA [Suspect]
     Active Substance: AFLIBERCEPT
     Dosage: 2 MG, ONCE, RIGHT EYE
     Route: 031
     Dates: start: 20150406, end: 20150406
  8. RABEPRAZOLE SODIUM. [Concomitant]
     Active Substance: RABEPRAZOLE SODIUM
     Dosage: 10 MG, OM
     Route: 048
  9. FOLIAMIN [Concomitant]
     Active Substance: FOLIC ACID
     Dosage: 5 MG, OM
     Route: 048

REACTIONS (1)
  - Optic ischaemic neuropathy [Not Recovered/Not Resolved]

NARRATIVE: CASE EVENT DATE: 2015
